FAERS Safety Report 15674956 (Version 1)
Quarter: 2018Q4

REPORT INFORMATION
  Report Type: Spontaneous
  Country: DK (occurrence: DK)
  Receive Date: 20181130
  Receipt Date: 20181130
  Transmission Date: 20190205
  Serious: Yes (Life-Threatening, Hospitalization)
  Sender: FDA-Public Use
  Company Number: DK-ACCORD-094402

PATIENT
  Age: 11 Year
  Sex: Male

DRUGS (6)
  1. SERTRALIN TEVA [Interacting]
     Active Substance: SERTRALINE HYDROCHLORIDE
     Indication: ANXIETY
     Dosage: STRENGTH: 50 MG
     Route: 048
     Dates: start: 20170927
  2. MEDIKINET [Interacting]
     Active Substance: METHYLPHENIDATE
     Indication: ATTENTION DEFICIT/HYPERACTIVITY DISORDER
     Dosage: DOSE: 1 TABLET PN, STRENGTH: 5 MG
     Route: 048
     Dates: start: 20180102, end: 20180102
  3. MELATONIN [Concomitant]
     Active Substance: MELATONIN
     Indication: INSOMNIA
     Dosage: STYRKE: 3 MG
     Route: 048
     Dates: start: 20150224
  4. QUETIAPIN ACCORD [Suspect]
     Active Substance: QUETIAPINE
     Indication: MENTAL DISORDER
     Dosage: STRENGTH: 25 MG
     Route: 048
     Dates: start: 20171211
  5. PARACETAMOL [Concomitant]
     Active Substance: ACETAMINOPHEN
     Indication: PAIN
     Dosage: DOSAGE: 1 TABLET AS NEEDED, MAXIMUM 4 TIMES DAILY, STRENGTH: 500 MG
     Route: 048
     Dates: start: 20130422
  6. MACROGOL/MACROGOL STEARATE [Concomitant]
     Indication: CONSTIPATION
     Route: 048
     Dates: start: 20121223

REACTIONS (3)
  - Muscle spasms [Recovered/Resolved]
  - Drug interaction [Unknown]
  - Seizure [Recovered/Resolved]

NARRATIVE: CASE EVENT DATE: 20180102
